FAERS Safety Report 17017893 (Version 8)
Quarter: 2021Q4

REPORT INFORMATION
  Report Type: Spontaneous
  Country: IT (occurrence: IT)
  Receive Date: 20191111
  Receipt Date: 20211122
  Transmission Date: 20220303
  Serious: Yes (Life-Threatening, Other)
  Sender: FDA-Public Use
  Company Number: IT-AUROBINDO-AUR-APL-2019-029775

PATIENT
  Age: 14 Year
  Sex: Female

DRUGS (2)
  1. IBUPROFEN [Interacting]
     Active Substance: IBUPROFEN
     Indication: Dysmenorrhoea
     Dosage: UNK
     Route: 048
  2. IBUPROFEN [Interacting]
     Active Substance: IBUPROFEN
     Indication: Vulvovaginal pain
     Dosage: UNK
     Route: 065

REACTIONS (10)
  - Anaphylactic reaction [Recovered/Resolved]
  - Throat tightness [Recovered/Resolved]
  - Depressed level of consciousness [Recovered/Resolved]
  - Dyspnoea [Recovered/Resolved]
  - Angioedema [Recovered/Resolved]
  - Abdominal pain [Recovered/Resolved]
  - Rash [Recovered/Resolved]
  - Labelled drug-food interaction medication error [Unknown]
  - Intentional product misuse [Unknown]
  - Medication error [Unknown]
